FAERS Safety Report 11043304 (Version 2)
Quarter: 2015Q2

REPORT INFORMATION
  Report Type: Report from Study
  Country: US (occurrence: US)
  Receive Date: 20150417
  Receipt Date: 20150602
  Transmission Date: 20150821
  Serious: Yes (Other)
  Sender: FDA-Public Use
  Company Number: US-BIOGENIDEC-2015BI047451

PATIENT
  Sex: Female

DRUGS (9)
  1. MINIVELLE [Concomitant]
     Active Substance: ESTRADIOL
  2. AMANTADINE HCL [Concomitant]
     Active Substance: AMANTADINE HYDROCHLORIDE
  3. RITALIN [Concomitant]
     Active Substance: METHYLPHENIDATE HYDROCHLORIDE
  4. TOPAMAX [Concomitant]
     Active Substance: TOPIRAMATE
  5. PRILOSEC [Concomitant]
     Active Substance: OMEPRAZOLE MAGNESIUM
  6. AVONEX [Suspect]
     Active Substance: INTERFERON BETA-1A
     Indication: MULTIPLE SCLEROSIS
     Route: 030
     Dates: start: 2007
  7. CLARTIN [Concomitant]
  8. PROVIGIL [Concomitant]
     Active Substance: MODAFINIL
  9. DETROL LA [Concomitant]
     Active Substance: TOLTERODINE TARTRATE

REACTIONS (1)
  - Ovarian cancer [Unknown]
